FAERS Safety Report 14076308 (Version 1)
Quarter: 2017Q4

REPORT INFORMATION
  Report Type: Spontaneous
  Country: US (occurrence: US)
  Receive Date: 20171011
  Receipt Date: 20171011
  Transmission Date: 20180321
  Serious: Yes (Hospitalization)
  Sender: FDA-Public Use
  Company Number: US-BAUSCH-BL-2017-028890

PATIENT
  Age: 48 Year
  Sex: Male

DRUGS (3)
  1. SYPRINE [Suspect]
     Active Substance: TRIENTINE HYDROCHLORIDE
     Dosage: CURRENT DOSE IS TWO CAPSULES AT 9 AM AND ONE CAPSULE AT 8 PM
     Route: 048
  2. TRAMADOL. [Concomitant]
     Active Substance: TRAMADOL
     Indication: PRODUCT USED FOR UNKNOWN INDICATION
     Route: 048
  3. SYPRINE [Suspect]
     Active Substance: TRIENTINE HYDROCHLORIDE
     Indication: HEPATO-LENTICULAR DEGENERATION
     Route: 048

REACTIONS (2)
  - Product storage error [Unknown]
  - Hospitalisation [Not Recovered/Not Resolved]
